FAERS Safety Report 18678829 (Version 1)
Quarter: 2020Q4

REPORT INFORMATION
  Report Type: Spontaneous
  Country: DE (occurrence: DE)
  Receive Date: 20201229
  Receipt Date: 20201229
  Transmission Date: 20210114
  Serious: Yes (Other)
  Sender: FDA-Public Use
  Company Number: DE-AMGEN-DEUSP2020209089

PATIENT
  Age: 31 Year
  Sex: Female

DRUGS (5)
  1. PALBOCICLIB [Concomitant]
     Active Substance: PALBOCICLIB
     Dosage: UNK
  2. OLAPARIB. [Suspect]
     Active Substance: OLAPARIB
     Dosage: 100 MILLIGRAM, BID
     Route: 065
  3. XGEVA [Suspect]
     Active Substance: DENOSUMAB
     Indication: METASTASES TO BONE
     Dosage: UNK
     Route: 065
  4. OLAPARIB. [Suspect]
     Active Substance: OLAPARIB
     Indication: BREAST CANCER METASTATIC
     Dosage: 150 MILLIGRAM, BID (600 MG/DAY )
     Route: 065
  5. LETROZOLE. [Concomitant]
     Active Substance: LETROZOLE
     Dosage: UNK

REACTIONS (6)
  - Nausea [Unknown]
  - Fatigue [Unknown]
  - Metastases to heart [Recovering/Resolving]
  - Metastases to lymph nodes [Unknown]
  - Metastases to bone [Recovering/Resolving]
  - Vomiting [Unknown]
